FAERS Safety Report 9425098 (Version 2)
Quarter: 2013Q3

REPORT INFORMATION
  Report Type: Spontaneous
  Country: DK (occurrence: DK)
  Receive Date: 20130729
  Receipt Date: 20130823
  Transmission Date: 20140515
  Serious: Yes (Hospitalization, Other)
  Sender: FDA-Public Use
  Company Number: DK-TEVA-420377ISR

PATIENT
  Sex: Female

DRUGS (13)
  1. METHOTREXATE [Suspect]
     Indication: BREAST CANCER
     Route: 065
     Dates: start: 2003
  2. SENDOXAN [Suspect]
     Indication: BREAST CANCER
     Route: 065
     Dates: start: 2003
  3. NAVELBINE [Suspect]
     Indication: BREAST CANCER
     Route: 065
  4. HERCEPTIN [Suspect]
     Indication: BREAST CANCER
     Route: 065
     Dates: start: 200701
  5. XELODA [Suspect]
     Indication: BREAST CANCER
     Route: 065
     Dates: start: 200812
  6. TAXOTERE [Suspect]
     Indication: BREAST CANCER
     Route: 065
     Dates: start: 200701
  7. ERIBULIN [Suspect]
     Indication: BREAST CANCER
     Route: 065
     Dates: start: 201201, end: 201301
  8. GEMCITABINE [Suspect]
     Indication: BREAST CANCER
     Route: 065
  9. CARBOPLATIN [Suspect]
     Indication: BREAST CANCER
     Route: 065
  10. LAPATINIB [Suspect]
     Indication: BREAST CANCER
     Route: 065
     Dates: start: 20100719, end: 201201
  11. FLUOROURACIL [Suspect]
     Indication: BREAST CANCER
     Route: 065
     Dates: start: 2003
  12. EPIRUBICIN [Suspect]
     Indication: BREAST CANCER
     Route: 065
     Dates: start: 2003
  13. CORODIL [Concomitant]
     Indication: CARDIAC DISORDER
     Route: 065

REACTIONS (2)
  - Disease progression [Not Recovered/Not Resolved]
  - Cardiac disorder [Unknown]
